FAERS Safety Report 25112553 (Version 1)
Quarter: 2025Q1

REPORT INFORMATION
  Report Type: Spontaneous
  Country: US (occurrence: US)
  Receive Date: 20250324
  Receipt Date: 20250324
  Transmission Date: 20250408
  Serious: No
  Sender: TORRENT PHARMA INC.
  Company Number: US-TORRENT-00014264

PATIENT
  Sex: Female

DRUGS (1)
  1. TIOPRONIN [Suspect]
     Active Substance: TIOPRONIN
     Indication: Product used for unknown indication
     Dosage: PRESCRIBED TIOPRONIN TABLETS AS ONE TABLET, TWO TIMES DAILY
     Route: 065

REACTIONS (1)
  - Off label use [Unknown]
